FAERS Safety Report 5517801-9 (Version None)
Quarter: 2007Q4

REPORT INFORMATION
  Report Type: 
  Country: None (occurrence: None)
  Receive Date: 20071114
  Receipt Date: 20071105
  Transmission Date: 20080405
  Serious: Yes (Other)
  Sender: FDA-Public Use
  Company Number: US-GILEAD-2007-0013802

PATIENT
  Sex: Female
  Weight: 60.382 kg

DRUGS (7)
  1. LETAIRIS [Suspect]
     Indication: PULMONARY HYPERTENSION
     Route: 048
     Dates: start: 20070708, end: 20071004
  2. NORVASC [Concomitant]
     Route: 048
  3. BENICAR [Concomitant]
  4. TENORMIN [Concomitant]
     Route: 048
  5. HYDROCHLOROTHIAZIDE [Concomitant]
  6. ZETIA [Concomitant]
  7. PRAVACHOL [Concomitant]

REACTIONS (2)
  - OEDEMA [None]
  - RENAL FAILURE [None]
